FAERS Safety Report 4508782-5 (Version None)
Quarter: 2004Q4

REPORT INFORMATION
  Report Type: 
  Country: None (occurrence: None)
  Receive Date: 20041123
  Receipt Date: 20040803
  Transmission Date: 20050328
  Serious: No
  Sender: FDA-Public Use
  Company Number: US-GLAXOSMITHKLINE-A0520729A

PATIENT
  Age: 51 Year
  Sex: Female

DRUGS (5)
  1. WELLBUTRIN SR [Suspect]
     Indication: DEPRESSION
     Dosage: 450MG PER DAY
     Route: 048
  2. K-DUR 10 [Concomitant]
  3. LASIX [Concomitant]
  4. AMBIEN [Concomitant]
  5. ATIVAN [Concomitant]

REACTIONS (1)
  - INSOMNIA [None]
